FAERS Safety Report 8213291-6 (Version None)
Quarter: 2012Q1

REPORT INFORMATION
  Report Type: 
  Country: None (occurrence: None)
  Receive Date: 20120315
  Receipt Date: 20120310
  Transmission Date: 20120608
  Serious: Yes (Other)
  Sender: FDA-Public Use
  Company Number: PHHY2012DE021359

PATIENT
  Age: 45 Year
  Sex: Male

DRUGS (1)
  1. GILENYA [Suspect]
     Indication: RELAPSING-REMITTING MULTIPLE SCLEROSIS
     Route: 048

REACTIONS (4)
  - MULTIPLE SCLEROSIS RELAPSE [None]
  - MALIGNANT MELANOMA [None]
  - EXPANDED DISABILITY STATUS SCALE SCORE INCREASED [None]
  - CENTRAL NERVOUS SYSTEM LESION [None]
